FAERS Safety Report 6409328-7 (Version None)
Quarter: 2009Q4

REPORT INFORMATION
  Report Type: 
  Country: None (occurrence: None)
  Receive Date: 20091019
  Receipt Date: 20091019
  Transmission Date: 20100525
  Serious: No
  Sender: FDA-Public Use
  Company Number: None

PATIENT
  Sex: Male
  Weight: 4.2 kg

DRUGS (2)
  1. GENTAK [Suspect]
     Indication: OPHTHALMIA NEONATORUM
     Dosage: 0.5-1CM ONCE CONJUCTIVAL SAC BOTH EYES
     Dates: start: 20091005
  2. GENTAK [Suspect]
     Indication: PROPHYLAXIS
     Dosage: 0.5-1CM ONCE CONJUCTIVAL SAC BOTH EYES
     Dates: start: 20091005

REACTIONS (1)
  - APPLICATION SITE ERYTHEMA [None]
